FAERS Safety Report 15529296 (Version 5)
Quarter: 2019Q1

REPORT INFORMATION
  Report Type: Report from Study
  Country: US (occurrence: US)
  Receive Date: 20181020
  Receipt Date: 20190129
  Transmission Date: 20190417
  Serious: No
  Sender: FDA-Public Use
  Company Number: PHEH2018US044243

PATIENT
  Age: 38 Year
  Sex: Female
  Weight: 52.1 kg

DRUGS (1)
  1. GLATOPA [Suspect]
     Active Substance: GLATIRAMER ACETATE
     Indication: MULTIPLE SCLEROSIS
     Dosage: 40 MG, THREE TIMES A WEEK
     Route: 058
     Dates: start: 20181002, end: 20181126

REACTIONS (16)
  - Decreased appetite [Not Recovered/Not Resolved]
  - Hypersensitivity [Recovered/Resolved]
  - Injection site mass [Not Recovered/Not Resolved]
  - Hyperhidrosis [Unknown]
  - Dysgeusia [Unknown]
  - Chest discomfort [Unknown]
  - Throat tightness [Unknown]
  - Dyspnoea [Recovered/Resolved]
  - Headache [Recovered/Resolved]
  - Nausea [Not Recovered/Not Resolved]
  - Dizziness [Unknown]
  - Urticaria [Not Recovered/Not Resolved]
  - Abdominal pain upper [Recovered/Resolved]
  - Erythema [Unknown]
  - Feeling hot [Not Recovered/Not Resolved]
  - Flushing [Recovered/Resolved]

NARRATIVE: CASE EVENT DATE: 20181004
